FAERS Safety Report 5824800-6 (Version None)
Quarter: 2008Q3

REPORT INFORMATION
  Report Type: 
  Country: None (occurrence: None)
  Receive Date: 20080728
  Receipt Date: 20080709
  Transmission Date: 20090109
  Serious: Yes (Life-Threatening)
  Sender: FDA-Public Use
  Company Number: FR-ASTRAZENECA-2006CG01207

PATIENT
  Age: 0 Hour
  Sex: Female
  Weight: 3.3 kg

DRUGS (2)
  1. XYLOCAINE [Suspect]
     Indication: LOCAL ANAESTHESIA
     Route: 064
     Dates: start: 20050309, end: 20050309
  2. ANTASOL [Suspect]
     Route: 064
     Dates: start: 20050309, end: 20050309

REACTIONS (5)
  - APNOEA [None]
  - CONVULSION [None]
  - CYANOSIS [None]
  - HYPOTONIA NEONATAL [None]
  - MYDRIASIS [None]
